FAERS Safety Report 14376800 (Version 1)
Quarter: 2018Q1

REPORT INFORMATION
  Report Type: Spontaneous
  Country: US (occurrence: US)
  Receive Date: 20180111
  Receipt Date: 20180111
  Transmission Date: 20180509
  Serious: No
  Sender: FDA-Public Use
  Company Number: US-TARO-2017TAR00344

PATIENT
  Sex: Female

DRUGS (2)
  1. CLOBETASOL PROPIONATE TOPICAL SOLUTION USP 0.05% [Suspect]
     Active Substance: CLOBETASOL PROPIONATE
     Indication: PSORIASIS
     Dosage: 2X/DAY
     Route: 061
     Dates: start: 20170306, end: 2017
  2. CLOBETASOL PROPIONATE TOPICAL SOLUTION USP 0.05% [Suspect]
     Active Substance: CLOBETASOL PROPIONATE
     Dosage: 1X/DAY
     Route: 061
     Dates: start: 2017, end: 20170501

REACTIONS (7)
  - Application site irritation [Recovering/Resolving]
  - Application site pain [Recovering/Resolving]
  - Alopecia [Unknown]
  - Application site pruritus [Recovering/Resolving]
  - Skin disorder [Not Recovered/Not Resolved]
  - Incorrect drug administration duration [Recovered/Resolved]
  - Inappropriate schedule of drug administration [Recovered/Resolved]

NARRATIVE: CASE EVENT DATE: 2017
